FAERS Safety Report 7273048-X (Version None)
Quarter: 2011Q1

REPORT INFORMATION
  Report Type: 
  Country: None (occurrence: None)
  Receive Date: 20110203
  Receipt Date: 20110125
  Transmission Date: 20110831
  Serious: Yes (Hospitalization)
  Sender: FDA-Public Use
  Company Number: Z0003314F

PATIENT
  Sex: Female
  Weight: 54.7 kg

DRUGS (1)
  1. PAZOPANIB [Suspect]
     Indication: RENAL CELL CARCINOMA
     Dosage: 800MG PER DAY
     Route: 048
     Dates: start: 20100205

REACTIONS (3)
  - PLEURITIC PAIN [None]
  - FLANK PAIN [None]
  - DIARRHOEA [None]
